FAERS Safety Report 9644446 (Version 4)
Quarter: 2013Q4

REPORT INFORMATION
  Report Type: Spontaneous
  Country: DE (occurrence: DE)
  Receive Date: 20131025
  Receipt Date: 20131226
  Transmission Date: 20140711
  Serious: Yes (Life-Threatening, Hospitalization, Other)
  Sender: FDA-Public Use
  Company Number: DE-ROCHE-1291976

PATIENT
  Age: 24 Year
  Sex: Female
  Weight: 51 kg

DRUGS (17)
  1. MIRCERA [Suspect]
     Indication: NEPHROGENIC ANAEMIA
     Route: 042
     Dates: start: 20130828
  2. MIRCERA [Suspect]
     Route: 042
     Dates: start: 20130925
  3. MIRCERA [Suspect]
     Route: 065
     Dates: start: 20131007
  4. MIRCERA [Suspect]
     Route: 042
     Dates: start: 20131014, end: 20131014
  5. MIRCERA [Suspect]
     Route: 042
     Dates: start: 20131002
  6. MIRCERA [Suspect]
     Route: 042
     Dates: start: 20130902
  7. APROVEL [Concomitant]
     Indication: HYPERTENSION
     Route: 048
     Dates: start: 20121001
  8. TORASEMIDE [Concomitant]
     Indication: HYPERTENSION
     Route: 048
     Dates: start: 20120215
  9. DREISAVIT N [Concomitant]
     Indication: HYPOVITAMINOSIS
     Route: 048
     Dates: start: 20110927
  10. NOVAMINSULFON [Concomitant]
     Route: 048
     Dates: start: 20130706
  11. ERYPO [Concomitant]
  12. IRBESARTAN [Concomitant]
     Route: 065
     Dates: start: 20121001
  13. NEORECORMON [Concomitant]
     Indication: FOCAL SEGMENTAL GLOMERULOSCLEROSIS
     Dosage: 2X /WEEK
     Route: 065
     Dates: start: 20130123, end: 20130423
  14. NEORECORMON [Concomitant]
     Dosage: 2X/WEEK
     Route: 065
     Dates: start: 20130423, end: 20130828
  15. NEORECORMON [Concomitant]
     Dosage: 2X 2000 IU PER WEEK
     Route: 065
     Dates: start: 20110127, end: 20120515
  16. NEORECORMON [Concomitant]
     Dosage: 2X 5000IU PER WEEK
     Route: 065
     Dates: start: 20120515, end: 20120726
  17. NEORECORMON [Concomitant]
     Dosage: 2X6000IE PER WEEK
     Route: 065
     Dates: start: 20120726, end: 20130123

REACTIONS (6)
  - Angioedema [Recovered/Resolved]
  - Infection [Unknown]
  - Flushing [Unknown]
  - Drug ineffective [Unknown]
  - Haemoglobin decreased [Not Recovered/Not Resolved]
  - Dyspnoea [Unknown]
